FAERS Safety Report 6201386-8 (Version None)
Quarter: 2009Q2

REPORT INFORMATION
  Report Type: 
  Country: None (occurrence: None)
  Receive Date: 20090526
  Receipt Date: 20090519
  Transmission Date: 20091009
  Serious: Yes (Life-Threatening, Hospitalization)
  Sender: FDA-Public Use
  Company Number: PHEH2009US04287

PATIENT
  Sex: Female

DRUGS (1)
  1. FEMARA [Suspect]
     Indication: BREAST CANCER
     Dosage: 10 PILLS
     Route: 048

REACTIONS (13)
  - ABASIA [None]
  - ARTHRALGIA [None]
  - ATRIAL FIBRILLATION [None]
  - BACK PAIN [None]
  - BLOOD PRESSURE DIASTOLIC DECREASED [None]
  - BONE PAIN [None]
  - BREAST PAIN [None]
  - CRYING [None]
  - DEPRESSION [None]
  - ERYTHEMA [None]
  - LIBIDO DECREASED [None]
  - MALAISE [None]
  - NAUSEA [None]
